FAERS Safety Report 11786488 (Version 2)
Quarter: 2015Q4

REPORT INFORMATION
  Report Type: Spontaneous
  Country: IT (occurrence: IT)
  Receive Date: 20151130
  Receipt Date: 20151221
  Transmission Date: 20160305
  Serious: Yes (Hospitalization)
  Sender: FDA-Public Use
  Company Number: IT-PFIZER INC-2015405930

PATIENT
  Age: 84 Year
  Sex: Female

DRUGS (4)
  1. CARDIOASPIRIN [Suspect]
     Active Substance: ASPIRIN
     Dosage: UNK
  2. ENTACT [Suspect]
     Active Substance: ESCITALOPRAM OXALATE
     Dosage: UNK, ONE BOX
  3. ALPRAZOLAM. [Suspect]
     Active Substance: ALPRAZOLAM
     Dosage: UNK, ONE BOTTLE
  4. TRIATEC [Suspect]
     Active Substance: RAMIPRIL
     Dosage: UNK

REACTIONS (4)
  - Disorientation [Recovering/Resolving]
  - Drug abuse [Recovering/Resolving]
  - Sopor [Recovering/Resolving]
  - Overdose [Recovering/Resolving]

NARRATIVE: CASE EVENT DATE: 20150924
